FAERS Safety Report 17348661 (Version 1)
Quarter: 2020Q1

REPORT INFORMATION
  Report Type: Report from Study
  Country: US (occurrence: US)
  Receive Date: 20200129
  Receipt Date: 20200129
  Transmission Date: 20200409
  Serious: No
  Sender: FDA-Public Use
  Company Number: US-EXELIXIS-CABO-19024388

PATIENT
  Sex: Male

DRUGS (15)
  1. CABOMETYX [Suspect]
     Active Substance: CABOZANTINIB S-MALATE
     Indication: RENAL CANCER
     Dosage: 40 MG, QD
     Route: 048
     Dates: start: 20190719
  2. VENTOLIN HFA [Concomitant]
     Active Substance: ALBUTEROL SULFATE
  3. DULCOLAX NOS [Concomitant]
     Active Substance: BISACODYL OR DOCUSATE SODIUM
  4. PERIDEX [Concomitant]
     Active Substance: CHLORHEXIDINE GLUCONATE
  5. LOFIBRA [Concomitant]
     Active Substance: FENOFIBRATE
  6. TYLENOL [Concomitant]
     Active Substance: ACETAMINOPHEN
  7. MAALOX ANTACID [Concomitant]
     Active Substance: ALUMINUM HYDROXIDE\DIMETHICONE\MAGNESIUM HYDROXIDE
  8. NEURONTIN [Concomitant]
     Active Substance: GABAPENTIN
  9. SODIUM CHLORIDE. [Concomitant]
     Active Substance: SODIUM CHLORIDE
  10. MUCOMYST [Concomitant]
     Active Substance: ACETYLCYSTEINE
  11. COLACE [Concomitant]
     Active Substance: DOCUSATE SODIUM
  12. AMOXICILLIN AND CLAVULANATE POTASSIUM [Concomitant]
     Active Substance: AMOXICILLIN\CLAVULANATE POTASSIUM
     Dosage: UNK
  13. TENORMIN [Concomitant]
     Active Substance: ATENOLOL
  14. HEPARIN [Concomitant]
     Active Substance: HEPARIN SODIUM
  15. LACTULOSE. [Concomitant]
     Active Substance: LACTULOSE
     Dosage: UNK

REACTIONS (4)
  - Bronchitis [Unknown]
  - Skin fissures [Unknown]
  - Cough [Unknown]
  - Blood potassium increased [Unknown]
